FAERS Safety Report 5037375-9 (Version None)
Quarter: 2006Q2

REPORT INFORMATION
  Report Type: 
  Country: None (occurrence: None)
  Receive Date: 20060622
  Receipt Date: 20060608
  Transmission Date: 20061013
  Serious: Yes (Other)
  Sender: FDA-Public Use
  Company Number: 2005JP002093

PATIENT
  Age: 29 Year
  Sex: Female
  Weight: 47 kg

DRUGS (7)
  1. PROGRAF [Suspect]
     Indication: RENAL TRANSPLANT
     Dosage: SEE IMAGE
     Route: 048
     Dates: start: 19980601
  2. PROGRAF [Suspect]
     Indication: RENAL TRANSPLANT
     Dosage: SEE IMAGE
     Route: 048
     Dates: start: 20010111
  3. PROGRAF [Suspect]
     Indication: RENAL TRANSPLANT
     Dosage: SEE IMAGE
     Route: 048
     Dates: start: 20030801
  4. PROGRAF [Suspect]
     Indication: RENAL TRANSPLANT
     Dosage: SEE IMAGE
     Route: 048
     Dates: start: 20030917
  5. PREDNISOLONE [Suspect]
     Dosage: 5.00 MG, BID, ORAL
     Route: 048
     Dates: start: 19990611
  6. NIVADIL             (NILVADIPINE) [Concomitant]
  7. NU-LOTAN                           (LOSARTAN POTASSIUM) PER ORAL NOS [Concomitant]

REACTIONS (6)
  - CERVICAL DYSPLASIA [None]
  - CONDYLOMA ACUMINATUM [None]
  - DRUG EXPOSURE DURING PREGNANCY [None]
  - INTRA-UTERINE DEATH [None]
  - PAPILLOMA VIRAL INFECTION [None]
  - RENAL IMPAIRMENT [None]
